FAERS Safety Report 8974328 (Version 2)
Quarter: 2013Q2

REPORT INFORMATION
  Report Type: Spontaneous
  Country: US (occurrence: US)
  Receive Date: 20121219
  Receipt Date: 20130606
  Transmission Date: 20140414
  Serious: No
  Sender: FDA-Public Use
  Company Number: US-AMGEN-USASP2012056572

PATIENT
  Age: 80 Year
  Sex: Female
  Weight: 70.84 kg

DRUGS (14)
  1. PROLIA [Suspect]
     Indication: OSTEOPOROSIS
     Dosage: 60 MG, Q6MO
     Route: 058
     Dates: start: 20120419
  2. PROLIA [Suspect]
     Indication: OSTEOARTHRITIS
     Dates: start: 201204
  3. IBUPROFEN [Concomitant]
     Indication: PAIN IN EXTREMITY
     Dosage: UNK UNK, QD
  4. IBUPROFEN [Concomitant]
     Indication: ARTHRALGIA
  5. IBUPROFEN [Concomitant]
     Indication: PAIN
  6. IRON [Concomitant]
     Dosage: UNK
  7. VITAMIN D                          /00107901/ [Concomitant]
     Dosage: UNK
  8. PRAVACHOL [Concomitant]
     Indication: DYSLIPIDAEMIA
     Dosage: 20 MG, QHS
     Route: 048
  9. MAGNESIUM [Concomitant]
     Dosage: UNK
  10. AIRBORNE [Concomitant]
     Dosage: UNK
  11. CALCIUM WITH VITAMIN D             /00944201/ [Concomitant]
     Dosage: UNK UNK, TID
     Route: 048
  12. CENTRUM SILVER                     /02363801/ [Concomitant]
     Dosage: UNK
     Route: 048
  13. ADVAIR [Concomitant]
     Indication: ASTHMA
     Dosage: UNK UNK, BID
  14. ARMOUR THYROID [Concomitant]
     Indication: HYPOTHYROIDISM
     Dosage: 60 MG, QD

REACTIONS (8)
  - Pain [Not Recovered/Not Resolved]
  - Muscle spasms [Not Recovered/Not Resolved]
  - Medial tibial stress syndrome [Not Recovered/Not Resolved]
  - Rash macular [Unknown]
  - Acne [Unknown]
  - Skin exfoliation [Unknown]
  - Arthralgia [Recovering/Resolving]
  - Pain in extremity [Not Recovered/Not Resolved]
